FAERS Safety Report 12328380 (Version 1)
Quarter: 2016Q2

REPORT INFORMATION
  Report Type: Report from Study
  Country: US (occurrence: US)
  Receive Date: 20160503
  Receipt Date: 20160503
  Transmission Date: 20160815
  Serious: Yes (Other)
  Sender: FDA-Public Use
  Company Number: US-GILEAD-2016-0210310

PATIENT
  Age: 84 Year
  Sex: Female

DRUGS (3)
  1. IDELALISIB [Suspect]
     Active Substance: IDELALISIB
     Indication: SKIN CANCER
     Dosage: 100 MG, BID
     Route: 048
  2. IDELALISIB [Suspect]
     Active Substance: IDELALISIB
     Indication: CHRONIC LYMPHOCYTIC LEUKAEMIA
     Dosage: 150 MG, BID
     Route: 048
     Dates: start: 20150901, end: 20151229
  3. IDELALISIB [Suspect]
     Active Substance: IDELALISIB
     Dosage: 150 MG QD/BID ALTERNATING DAILY
     Route: 048

REACTIONS (3)
  - Skin exfoliation [Recovering/Resolving]
  - Off label use [Recovered/Resolved]
  - White blood cell count increased [Unknown]

NARRATIVE: CASE EVENT DATE: 20160129
